FAERS Safety Report 9678954 (Version 2)
Quarter: 2013Q4

REPORT INFORMATION
  Report Type: Spontaneous
  Country: US (occurrence: None)
  Receive Date: 20131107
  Receipt Date: 20131227
  Transmission Date: 20140711
  Serious: Yes (Hospitalization)
  Sender: FDA-Public Use
  Company Number: SYM-2013-12448

PATIENT
  Sex: Female

DRUGS (2)
  1. WELLBUTRIN [Suspect]
     Indication: DEPRESSION
  2. UNKNOWN INTRAVENOUS MEDICATION (OTHER THERAPEUTIC PRODUCTS) (NULL) [Concomitant]

REACTIONS (9)
  - Spinal fracture [None]
  - Weight decreased [None]
  - Dysgeusia [None]
  - Decreased appetite [None]
  - Malaise [None]
  - Neuralgia [None]
  - Precancerous cells present [None]
  - Breast disorder [None]
  - Breast disorder female [None]
